FAERS Safety Report 14931434 (Version 1)
Quarter: 2018Q2

REPORT INFORMATION
  Report Type: Spontaneous
  Country: FR (occurrence: FR)
  Receive Date: 20180524
  Receipt Date: 20180524
  Transmission Date: 20180711
  Serious: Yes (Other)
  Sender: FDA-Public Use
  Company Number: FR-MERCK KGAA-2048375

PATIENT
  Age: 54 Year
  Sex: Female

DRUGS (1)
  1. NOVOTHYROX [Suspect]
     Active Substance: LEVOTHYROXINE SODIUM
     Indication: POST PROCEDURAL HYPOTHYROIDISM

REACTIONS (32)
  - Suicidal ideation [None]
  - Pain in extremity [None]
  - Arthralgia [None]
  - Flatulence [None]
  - Disturbance in attention [None]
  - High density lipoprotein increased [None]
  - Sleep disorder [None]
  - Depression [None]
  - Memory impairment [None]
  - Irritability [None]
  - Feeling abnormal [None]
  - Fatigue [None]
  - Loss of personal independence in daily activities [None]
  - Weight increased [None]
  - Personal relationship issue [None]
  - Gastrointestinal disorder [None]
  - Dry skin [None]
  - Fatigue [None]
  - Social avoidant behaviour [None]
  - Abdominal distension [None]
  - Myalgia [None]
  - Low density lipoprotein increased [None]
  - Burning sensation [None]
  - Decreased interest [None]
  - Affective disorder [None]
  - Onychoclasis [None]
  - Blood cholesterol increased [None]
  - Constipation [None]
  - Mood altered [None]
  - Loss of libido [None]
  - Ligament sprain [None]
  - Alopecia [None]

NARRATIVE: CASE EVENT DATE: 201703
